FAERS Safety Report 23815575 (Version 1)
Quarter: 2024Q2

REPORT INFORMATION
  Report Type: Spontaneous
  Country: RO (occurrence: RO)
  Receive Date: 20240503
  Receipt Date: 20240503
  Transmission Date: 20240716
  Serious: Yes (Other)
  Sender: FDA-Public Use
  Company Number: RO-009507513-2404ROU007868

PATIENT
  Age: 32 Year
  Sex: Female
  Weight: 50 kg

DRUGS (4)
  1. ABACAVIR [Suspect]
     Active Substance: ABACAVIR
     Indication: Product used for unknown indication
     Dosage: UNK
     Route: 065
     Dates: start: 2008
  2. COMBIVIR [Suspect]
     Active Substance: LAMIVUDINE\ZIDOVUDINE
     Indication: Product used for unknown indication
     Dosage: UNK
     Route: 065
     Dates: start: 2003, end: 2008
  3. COMBIVIR [Suspect]
     Active Substance: LAMIVUDINE\ZIDOVUDINE
     Dosage: UNK
     Route: 065
     Dates: start: 2016, end: 2021
  4. EFAVIRENZ [Suspect]
     Active Substance: EFAVIRENZ
     Indication: Product used for unknown indication
     Dosage: UNK
     Route: 048
     Dates: start: 2003, end: 2008

REACTIONS (11)
  - Toxocariasis [Unknown]
  - Pneumonia bacterial [Unknown]
  - Dermatitis contact [Unknown]
  - Toxoplasmosis [Unknown]
  - Arthralgia [Recovered/Resolved]
  - Dyslipidaemia [Unknown]
  - Myalgia [Recovered/Resolved]
  - Hypertension [Unknown]
  - Weight decreased [Unknown]
  - Drug intolerance [Unknown]
  - Product availability issue [Unknown]
